FAERS Safety Report 8336397 (Version 2)
Quarter: 2013Q3

REPORT INFORMATION
  Report Type: Spontaneous
  Country: US (occurrence: US)
  Receive Date: 20120113
  Receipt Date: 20130910
  Transmission Date: 20140515
  Serious: Yes (Other)
  Sender: FDA-Public Use
  Company Number: US-ROCHE-794238

PATIENT
  Age: 42 Year
  Sex: Female
  Weight: 57.2 kg

DRUGS (3)
  1. ACCUTANE [Suspect]
     Indication: ACNE
     Route: 065
  2. ACCUTANE [Suspect]
     Route: 048
  3. XANAX [Concomitant]
     Indication: ANXIETY

REACTIONS (9)
  - Inflammatory bowel disease [Unknown]
  - Crohn^s disease [Unknown]
  - Irritable bowel syndrome [Unknown]
  - Intestinal obstruction [Unknown]
  - Depression [Unknown]
  - Blood triglycerides increased [Unknown]
  - Lip dry [Unknown]
  - Dry skin [Unknown]
  - Headache [Unknown]
